FAERS Safety Report 13049279 (Version 1)
Quarter: 2016Q4

REPORT INFORMATION
  Report Type: Spontaneous
  Country: JP (occurrence: JP)
  Receive Date: 20161221
  Receipt Date: 20161221
  Transmission Date: 20170207
  Serious: Yes (Life-Threatening, Hospitalization)
  Sender: FDA-Public Use
  Company Number: JP-BAYER-2016-230115

PATIENT
  Age: 85 Year
  Sex: Female

DRUGS (8)
  1. EPADEL [Concomitant]
     Active Substance: ICOSAPENT
     Dosage: DAILY DOSE 1800 MG
     Route: 048
     Dates: start: 20111011, end: 20161112
  2. VASOLAN [Concomitant]
     Active Substance: VERAPAMIL HYDROCHLORIDE
     Dosage: DAILY DOSE 80 MG
     Route: 048
     Dates: start: 20110118, end: 20161112
  3. METHYCOBAL [Concomitant]
     Active Substance: METHYLCOBALAMIN
     Dosage: DAILY DOSE 1.5 MG
     Route: 048
     Dates: start: 20140805, end: 20161112
  4. BAYASPIRIN 100 MG [Suspect]
     Active Substance: ASPIRIN
     Dosage: UNK
     Route: 048
  5. BISOPROLOL [Concomitant]
     Active Substance: BISOPROLOL
     Dosage: DAILY DOSE 2 DF
     Route: 062
     Dates: start: 20111011, end: 20161112
  6. DIART [Concomitant]
     Active Substance: AZOSEMIDE
     Dosage: DAILY DOSE 30 MG
     Route: 048
     Dates: start: 20160216
  7. PROMAC [POLAPREZINC] [Concomitant]
     Active Substance: POLAPREZINC
     Dosage: DAILY DOSE 75 MG
     Route: 048
     Dates: start: 20130625, end: 20161112
  8. XARELTO [Suspect]
     Active Substance: RIVAROXABAN
     Indication: ATRIAL FIBRILLATION
     Dosage: 10 MG, QD
     Route: 048
     Dates: start: 20160927, end: 20161112

REACTIONS (1)
  - Acute myocardial infarction [Recovering/Resolving]

NARRATIVE: CASE EVENT DATE: 20161112
